FAERS Safety Report 4545367-9 (Version None)
Quarter: 2005Q1

REPORT INFORMATION
  Report Type: 
  Country: None (occurrence: None)
  Receive Date: 20050103
  Receipt Date: 20041215
  Transmission Date: 20050727
  Serious: Yes (Hospitalization)
  Sender: FDA-Public Use
  Company Number: F01200403795

PATIENT
  Age: 71 Year
  Sex: Male

DRUGS (8)
  1. (OXALIPLATIN) - SOLUTION - 85 MG/M2 [Suspect]
     Indication: COLORECTAL CANCER METASTATIC
     Dosage: 136 MG Q2W, INTRAVENOUS NOS
     Route: 042
     Dates: start: 20041110, end: 20041110
  2. FLUOROURACIL [Suspect]
     Dosage: 3140 MG (2250 MG/M2 IN 48 HOURS, WEEKLY) INTRAVENOUS NOS
     Route: 042
     Dates: start: 20041117, end: 20041119
  3. OMEPRAZOLE [Concomitant]
  4. LEXATIN (BROMAZEPAM) [Concomitant]
  5. VASTAT FLAS (MIRTAZAPINE) [Concomitant]
  6. DILTIAZEM HYDROCHLORIDE [Concomitant]
  7. FRAGMIN [Concomitant]
  8. DIGOXIN [Concomitant]

REACTIONS (3)
  - DIARRHOEA [None]
  - RENAL FAILURE ACUTE [None]
  - VOMITING [None]
